FAERS Safety Report 21667117 (Version 1)
Quarter: 2022Q4

REPORT INFORMATION
  Report Type: Spontaneous
  Country: US (occurrence: US)
  Receive Date: 20221201
  Receipt Date: 20221201
  Transmission Date: 20230113
  Serious: No
  Sender: FDA-Public Use
  Company Number: US-BRISTOL-MYERS SQUIBB COMPANY-2022-145681

PATIENT
  Age: 80 Year
  Sex: Male
  Weight: 79.37 kg

DRUGS (1)
  1. REVLIMID [Suspect]
     Active Substance: LENALIDOMIDE
     Indication: Myelodysplastic syndrome
     Route: 048

REACTIONS (4)
  - Abdominal discomfort [Unknown]
  - Pain [Unknown]
  - Weight decreased [Unknown]
  - Decreased appetite [Unknown]
